FAERS Safety Report 14970885 (Version 2)
Quarter: 2018Q2

REPORT INFORMATION
  Report Type: Report from Study
  Country: None (occurrence: US)
  Receive Date: 20180604
  Receipt Date: 20180629
  Transmission Date: 20180711
  Serious: Yes (Other)
  Sender: FDA-Public Use
  Company Number: US-ABBVIE-18K-163-2373086-00

PATIENT
  Sex: Female

DRUGS (2)
  1. HUMIRA [Suspect]
     Active Substance: ADALIMUMAB
     Indication: RHEUMATOID ARTHRITIS
     Route: 058
  2. HUMIRA [Suspect]
     Active Substance: ADALIMUMAB
     Route: 058

REACTIONS (6)
  - Patient-device incompatibility [Unknown]
  - Blood pressure abnormal [Unknown]
  - Foot deformity [Not Recovered/Not Resolved]
  - Stress [Recovering/Resolving]
  - Rheumatoid arthritis [Recovering/Resolving]
  - Medical device discomfort [Unknown]
